FAERS Safety Report 9254786 (Version 1)
Quarter: 2013Q2

REPORT INFORMATION
  Report Type: Spontaneous
  Country: US (occurrence: None)
  Receive Date: 20130419
  Receipt Date: 20130419
  Transmission Date: 20140414
  Serious: Yes (Other)
  Sender: FDA-Public Use
  Company Number: UCM201304-000022

PATIENT
  Age: 68 Year
  Sex: Female
  Weight: 81.54 kg

DRUGS (11)
  1. MELOXICAM [Suspect]
     Indication: PAIN
     Dates: start: 20121009, end: 20121014
  2. ESTRADIOL (ESTRADIOL) (ESTRADIOL) [Concomitant]
  3. GABAPENTIN (GABAPENTIN) (GABAPENTIN) [Concomitant]
  4. WELLBUTRIN (BUPROP [Concomitant]
  5. BACLOFEN (BACLOFEN) (BACLOFEN) [Concomitant]
  6. MOBIC (MELOXICAM) (MELOXICAM) [Concomitant]
  7. TYLENOL (ACETAMINOPHEN) (ACETAMINOPHEN) [Concomitant]
  8. SYNTHROID (LEVOTHYROXINE0 (LEVOTHYROXINE) [Concomitant]
  9. AMBIEN (ZOLPIDEM) (ZOLIPIDEM) [Concomitant]
  10. AMBIEN CR (ZOLPIDEM) (ZOLIPIDEM) [Concomitant]
  11. METOPROLOL SUCCINATE ER (METOPROLOL SUCCINATE ER) (METOPROLOL SUCCINATE ER) [Concomitant]

REACTIONS (4)
  - Paraesthesia [None]
  - Oedema peripheral [None]
  - Gait disturbance [None]
  - Paraesthesia [None]
